FAERS Safety Report 9962862 (Version 2)
Quarter: 2014Q1

REPORT INFORMATION
  Report Type: Report from Study
  Country: US (occurrence: US)
  Receive Date: 20140305
  Receipt Date: 20140305
  Transmission Date: 20141002
  Serious: No
  Sender: FDA-Public Use
  Company Number: US-ABBVIE-13P-163-1058420-00

PATIENT
  Age: 65 Year
  Sex: Female

DRUGS (16)
  1. HUMIRA [Suspect]
     Indication: CROHN^S DISEASE
     Dates: start: 20130213
  2. HUMIRA [Suspect]
     Dates: start: 20130227
  3. HUMIRA [Suspect]
  4. CHOLESTIPOL [Concomitant]
     Indication: CROHN^S DISEASE
     Route: 048
  5. IMURAN [Concomitant]
     Indication: CROHN^S DISEASE
     Dosage: 2.5 TABLETS ONCE DAILY
  6. PREDNISONE [Concomitant]
     Indication: CROHN^S DISEASE
     Route: 048
  7. ASACOL HD [Concomitant]
     Indication: CROHN^S DISEASE
     Route: 048
  8. CIPROFLOXACIN [Concomitant]
     Indication: CROHN^S DISEASE
  9. ASPIRIN [Concomitant]
     Indication: CEREBROVASCULAR ACCIDENT
     Route: 048
  10. IRON [Concomitant]
     Indication: HAEMOGLOBIN ABNORMAL
     Route: 048
  11. FOSAMAX [Concomitant]
     Indication: OSTEOPOROSIS
     Route: 048
  12. VITAMIN D [Concomitant]
     Indication: VITAMIN SUPPLEMENTATION
     Route: 048
  13. CALCIUM [Concomitant]
     Indication: MINERAL SUPPLEMENTATION
     Route: 048
  14. CENTRUM SILVER [Concomitant]
     Indication: PRODUCT USED FOR UNKNOWN INDICATION
     Route: 048
  15. FLAX SEED OIL [Concomitant]
     Indication: MACULAR DEGENERATION
     Route: 048
  16. ZEAXANTHIN [Concomitant]
     Indication: MACULAR DEGENERATION
     Route: 048

REACTIONS (1)
  - Injection site pain [Recovered/Resolved]
